FAERS Safety Report 24855310 (Version 1)
Quarter: 2025Q1

REPORT INFORMATION
  Report Type: Spontaneous
  Country: IT (occurrence: IT)
  Receive Date: 20250117
  Receipt Date: 20250117
  Transmission Date: 20250409
  Serious: Yes (Life-Threatening, Hospitalization, Other)
  Sender: HIKMA
  Company Number: None

PATIENT
  Age: 18 Year
  Sex: Female
  Weight: 75 kg

DRUGS (3)
  1. CYTARABINE [Suspect]
     Active Substance: CYTARABINE
     Indication: Product used for unknown indication
     Dosage: 1900 MILLIGRAM, BID
     Route: 042
     Dates: start: 20241113, end: 20241116
  2. DAUNORUBICIN [Suspect]
     Active Substance: DAUNORUBICIN
     Indication: Product used for unknown indication
     Route: 042
     Dates: start: 20241114
  3. MYLOTARG [Suspect]
     Active Substance: GEMTUZUMAB OZOGAMICIN
     Indication: Acute myeloid leukaemia
     Route: 042
     Dates: start: 20241113

REACTIONS (1)
  - Septic shock [Recovering/Resolving]

NARRATIVE: CASE EVENT DATE: 20241124
